FAERS Safety Report 7339805-6 (Version None)
Quarter: 2011Q1

REPORT INFORMATION
  Report Type: 
  Country: None (occurrence: None)
  Receive Date: 20110309
  Receipt Date: 20100310
  Transmission Date: 20110831
  Serious: No
  Sender: FDA-Public Use
  Company Number: US-BAYER-201016852NA

PATIENT
  Sex: Female

DRUGS (2)
  1. MIRENA [Suspect]
     Indication: CONTRACEPTION
     Dosage: UNK
     Dates: start: 20050101
  2. MIRENA [Suspect]
     Indication: MENSTRUATION IRREGULAR

REACTIONS (2)
  - AMENORRHOEA [None]
  - UTERINE PAIN [None]
